FAERS Safety Report 18567926 (Version 1)
Quarter: 2020Q4

REPORT INFORMATION
  Report Type: Spontaneous
  Country: US (occurrence: US)
  Receive Date: 20201202
  Receipt Date: 20201202
  Transmission Date: 20210114
  Serious: Yes (Other)
  Sender: FDA-Public Use
  Company Number: US-SA-2020SA298543

PATIENT

DRUGS (1)
  1. DULCOLAX NOS [Suspect]
     Active Substance: BISACODYL OR DOCUSATE SODIUM
     Dosage: 6 DF (3 TABLET IN MORNING AND 3 TABLET BEFORE DOING TO BED)
     Route: 065
     Dates: start: 20201020

REACTIONS (5)
  - Drug ineffective [Unknown]
  - Faeces discoloured [Unknown]
  - Diarrhoea [Unknown]
  - Product use issue [Unknown]
  - Haematochezia [Unknown]

NARRATIVE: CASE EVENT DATE: 20201020
